FAERS Safety Report 13076764 (Version 2)
Quarter: 2017Q1

REPORT INFORMATION
  Report Type: Spontaneous
  Country: FR (occurrence: FR)
  Receive Date: 20161230
  Receipt Date: 20170331
  Transmission Date: 20170428
  Serious: Yes (Life-Threatening)
  Sender: FDA-Public Use
  Company Number: FR-SA-2016SA237664

PATIENT
  Age: 68 Year
  Sex: Female

DRUGS (11)
  1. AMIKLIN [Concomitant]
     Active Substance: AMIKACIN SULFATE
  2. ZOPHREN [Concomitant]
     Active Substance: ONDANSETRON
  3. ENDOXAN [Suspect]
     Active Substance: CYCLOPHOSPHAMIDE
     Indication: BONE MARROW CONDITIONING REGIMEN
     Route: 041
     Dates: start: 20161209, end: 20161210
  4. TRIFLUCAN [Concomitant]
     Active Substance: FLUCONAZOLE
     Indication: PROPHYLAXIS
  5. EVOLTRA [Suspect]
     Active Substance: CLOFARABINE
     Indication: BONE MARROW CONDITIONING REGIMEN
     Route: 041
     Dates: start: 20161130, end: 20161204
  6. PRIMPERAN [Concomitant]
     Active Substance: METOCLOPRAMIDE HYDROCHLORIDE
  7. OCTAGAM IMMUNE GLOBULIN (HUMAN) [Concomitant]
     Active Substance: HUMAN IMMUNOGLOBULIN G
  8. TIENAM [Concomitant]
     Active Substance: CILASTATIN SODIUM\IMIPENEM
  9. ENDOXAN [Suspect]
     Active Substance: CYCLOPHOSPHAMIDE
     Indication: BONE MARROW CONDITIONING REGIMEN
     Route: 041
     Dates: start: 20161130, end: 20161201
  10. EMEND [Concomitant]
     Active Substance: APREPITANT
  11. AXEPIM [Concomitant]
     Active Substance: CEFEPIME HYDROCHLORIDE

REACTIONS (1)
  - Myocarditis [Recovered/Resolved]

NARRATIVE: CASE EVENT DATE: 20161220
